FAERS Safety Report 6594159-8 (Version None)
Quarter: 2010Q1

REPORT INFORMATION
  Report Type: 
  Country: None (occurrence: None)
  Receive Date: 20100222
  Receipt Date: 20100211
  Transmission Date: 20100710
  Serious: Yes (Other)
  Sender: FDA-Public Use
  Company Number: US-JNJFOC-20100207011

PATIENT
  Age: 66 Year
  Sex: Male

DRUGS (4)
  1. INFLIXIMAB [Suspect]
     Indication: CROHN'S DISEASE
     Route: 042
  2. INFLIXIMAB [Suspect]
     Route: 042
  3. PREDNISONE [Concomitant]
  4. MERCAPTOPURINE [Concomitant]

REACTIONS (2)
  - HODGKIN'S DISEASE MIXED CELLULARITY STAGE UNSPECIFIED [None]
  - INTESTINAL PERFORATION [None]
